FAERS Safety Report 20664156 (Version 1)
Quarter: 2022Q2

REPORT INFORMATION
  Report Type: Spontaneous
  Country: FR (occurrence: FR)
  Receive Date: 20220401
  Receipt Date: 20220401
  Transmission Date: 20220721
  Serious: Yes (Hospitalization)
  Sender: FDA-Public Use
  Company Number: None

PATIENT
  Age: 41 Year
  Sex: Male

DRUGS (2)
  1. ALPRAZOLAM [Suspect]
     Active Substance: ALPRAZOLAM
     Dosage: UNSPECIFIED
     Route: 048
     Dates: start: 2005
  2. CODEINE [Suspect]
     Active Substance: CODEINE
     Dosage: UP TO 480MG PER DOSE
     Route: 048
     Dates: start: 2016

REACTIONS (2)
  - Drug abuse [Recovering/Resolving]
  - Suicidal ideation [Recovering/Resolving]

NARRATIVE: CASE EVENT DATE: 20160101
